FAERS Safety Report 23272362 (Version 2)
Quarter: 2024Q3

REPORT INFORMATION
  Report Type: Report from Study
  Country: DE (occurrence: DE)
  Receive Date: 20231207
  Receipt Date: 20240702
  Transmission Date: 20241016
  Serious: Yes (Hospitalization)
  Sender: RANBAXY
  Company Number: DE-SUN PHARMACEUTICAL INDUSTRIES LTD-2023RR-421694

PATIENT
  Age: 72 Year
  Sex: Male
  Weight: 105 kg

DRUGS (14)
  1. TILDRAKIZUMAB [Suspect]
     Active Substance: TILDRAKIZUMAB
     Indication: Psoriasis
     Dosage: 100 MILLIGRAM, UNK
     Route: 058
     Dates: start: 20220317
  2. TILDRAKIZUMAB [Suspect]
     Active Substance: TILDRAKIZUMAB
     Dosage: 2ND INJECTION
     Route: 040
     Dates: start: 20220414
  3. TILDRAKIZUMAB [Suspect]
     Active Substance: TILDRAKIZUMAB
     Dosage: 3RD INJECTION
     Route: 040
     Dates: start: 20220714
  4. TILDRAKIZUMAB [Suspect]
     Active Substance: TILDRAKIZUMAB
     Dosage: 4TH INJECTION
     Route: 040
     Dates: start: 20221006
  5. TILDRAKIZUMAB [Suspect]
     Active Substance: TILDRAKIZUMAB
     Dosage: 5TH INJECTION
     Route: 040
     Dates: start: 20230106
  6. TILDRAKIZUMAB [Suspect]
     Active Substance: TILDRAKIZUMAB
     Dosage: 6TH INJECTION
     Route: 040
     Dates: start: 20240414
  7. TILDRAKIZUMAB [Suspect]
     Active Substance: TILDRAKIZUMAB
     Dosage: 7TH INJECTION
     Dates: start: 20240714
  8. TILDRAKIZUMAB [Suspect]
     Active Substance: TILDRAKIZUMAB
     Dosage: 8TH INJECTION
     Route: 040
     Dates: start: 20231020
  9. TILDRAKIZUMAB [Suspect]
     Active Substance: TILDRAKIZUMAB
     Dosage: 9TH INJECTION
     Route: 040
     Dates: start: 20240119
  10. METFORMIN [Concomitant]
     Active Substance: METFORMIN HYDROCHLORIDE
     Indication: Product used for unknown indication
     Dosage: 1-0-0
     Route: 065
  11. ROSUVASTATIN [Concomitant]
     Active Substance: ROSUVASTATIN
     Indication: Product used for unknown indication
     Dosage: 1-0-0
     Route: 065
  12. LOSARTAN [Concomitant]
     Active Substance: LOSARTAN
     Indication: Product used for unknown indication
     Dosage: 1-0-0
  13. ENOXAPARIN [Concomitant]
     Active Substance: ENOXAPARIN
     Indication: Product used for unknown indication
     Dosage: 0.4 MILLILITER
     Route: 058
  14. IBUPROFEN [Concomitant]
     Active Substance: IBUPROFEN
     Indication: Product used for unknown indication
     Dosage: 600 MILLIGRAM, UP TO MAX. 3X DAILY, IF NEEDED

REACTIONS (1)
  - Squamous cell carcinoma of skin [Recovered/Resolved]

NARRATIVE: CASE EVENT DATE: 20230612
